FAERS Safety Report 10948347 (Version 1)
Quarter: 2015Q1

REPORT INFORMATION
  Report Type: Spontaneous
  Country: US (occurrence: None)
  Receive Date: 20150225
  Receipt Date: 20150225
  Transmission Date: 20150721
  Serious: Yes (Death)
  Sender: FDA-Public Use
  Company Number: 2014-US-000035

PATIENT
  Sex: Male

DRUGS (1)
  1. PRIALT [Suspect]
     Active Substance: ZICONOTIDE ACETATE
     Indication: PAIN
     Dosage: UG, QH, INTRATHECAL
     Route: 037
     Dates: start: 2010

REACTIONS (1)
  - Completed suicide [None]

NARRATIVE: CASE EVENT DATE: 20131225
